FAERS Safety Report 9582726 (Version 1)
Quarter: 2013Q4

REPORT INFORMATION
  Report Type: Spontaneous
  Country: US (occurrence: US)
  Receive Date: 20131002
  Receipt Date: 20131002
  Transmission Date: 20140711
  Serious: No
  Sender: FDA-Public Use
  Company Number: US-AMGEN-USASP2013042486

PATIENT
  Age: 47 Year
  Sex: Female
  Weight: 68.03 kg

DRUGS (6)
  1. ENBREL [Suspect]
     Indication: PRODUCT USED FOR UNKNOWN INDICATION
     Dosage: 50 MG, QWK
     Route: 065
  2. CYMBALTA [Concomitant]
     Dosage: 20 MG, UNK
  3. SINGULAIR [Concomitant]
     Dosage: 10 MG, UNK
  4. OXYMORPHONE [Concomitant]
     Dosage: 5 MG, ER
  5. OXYCODONE [Concomitant]
     Dosage: 5 MG, UNK
  6. DICLOFENAC [Concomitant]
     Dosage: 25 MG, UNK

REACTIONS (2)
  - Pain [Unknown]
  - Injection site urticaria [Recovered/Resolved]
